FAERS Safety Report 6347263-3 (Version None)
Quarter: 2009Q3

REPORT INFORMATION
  Report Type: 
  Country: None (occurrence: None)
  Receive Date: 20090910
  Receipt Date: 20090902
  Transmission Date: 20100115
  Serious: Yes (Other)
  Sender: FDA-Public Use
  Company Number: AU-BRISTOL-MYERS SQUIBB COMPANY-14763957

PATIENT
  Age: 49 Year
  Sex: Male

DRUGS (4)
  1. STAVUDINE [Suspect]
     Indication: ANTIRETROVIRAL THERAPY
     Route: 048
  2. LAMIVUDINE [Suspect]
     Indication: ANTIRETROVIRAL THERAPY
     Route: 048
  3. ZIDOVUDINE [Suspect]
     Indication: ANTIRETROVIRAL THERAPY
     Dosage: 1 DF = 500 (UNITS NOT SPECIFIED).
     Route: 048
  4. NELFINAVIR [Suspect]
     Indication: ANTIRETROVIRAL THERAPY

REACTIONS (3)
  - LIPOATROPHY [None]
  - MITOCHONDRIAL CYTOPATHY [None]
  - NEOPLASM PROGRESSION [None]
